FAERS Safety Report 13367946 (Version 1)
Quarter: 2017Q1

REPORT INFORMATION
  Report Type: Spontaneous
  Country: US (occurrence: US)
  Receive Date: 20170324
  Receipt Date: 20170324
  Transmission Date: 20170429
  Serious: Yes (Other)
  Sender: FDA-Public Use
  Company Number: US-BAYER-2017-052229

PATIENT
  Age: 75 Year
  Sex: Male

DRUGS (1)
  1. STIVARGA [Suspect]
     Active Substance: REGORAFENIB
     Indication: HEPATIC CANCER
     Dosage: 160 MG, QD
     Route: 048
     Dates: start: 20170302, end: 20170315

REACTIONS (4)
  - Erythema [None]
  - Pain in extremity [None]
  - Peripheral swelling [None]
  - Off label use [None]

NARRATIVE: CASE EVENT DATE: 201703
